FAERS Safety Report 13519268 (Version 2)
Quarter: 2017Q3

REPORT INFORMATION
  Report Type: Spontaneous
  Country: US (occurrence: US)
  Receive Date: 20170505
  Receipt Date: 20170724
  Transmission Date: 20171127
  Serious: No
  Sender: FDA-Public Use
  Company Number: US-SHIRE-US201710047

PATIENT
  Age: 62 Year
  Sex: Male
  Weight: 68.27 kg

DRUGS (4)
  1. XIIDRA [Suspect]
     Active Substance: LIFITEGRAST
     Dosage: 5 %, 2X/DAY:BID
     Route: 047
     Dates: start: 20170429, end: 20170430
  2. TELMISARTAN HCTZ [Concomitant]
     Active Substance: HYDROCHLOROTHIAZIDE\TELMISARTAN
     Indication: HYPERTENSION
     Dosage: 40/12.5 MG, 1X/DAY:QD
     Route: 048
  3. XIIDRA [Suspect]
     Active Substance: LIFITEGRAST
     Dosage: 5 %, 2X/DAY:BID
     Route: 047
     Dates: start: 201703, end: 2017
  4. XIIDRA [Suspect]
     Active Substance: LIFITEGRAST
     Indication: DRY EYE
     Dosage: 5 %, 2X/DAY:BID
     Route: 047
     Dates: start: 201702, end: 201703

REACTIONS (8)
  - Instillation site inflammation [Recovered/Resolved]
  - Drug dose omission [Recovered/Resolved]
  - Eye infection [Recovered/Resolved]
  - Instillation site discomfort [Not Recovered/Not Resolved]
  - Instillation site irritation [Recovered/Resolved]
  - Instillation site erythema [Not Recovered/Not Resolved]
  - Fear [Recovered/Resolved]
  - Instillation site swelling [Recovered/Resolved]

NARRATIVE: CASE EVENT DATE: 2017
